FAERS Safety Report 9836274 (Version 2)
Quarter: 2014Q1

REPORT INFORMATION
  Report Type: Report from Study
  Country: PL (occurrence: PL)
  Receive Date: 20140123
  Receipt Date: 20140123
  Transmission Date: 20141002
  Serious: Yes (Hospitalization, Other)
  Sender: FDA-Public Use
  Company Number: PL-ROCHE-1307852

PATIENT
  Sex: Female
  Weight: 101 kg

DRUGS (3)
  1. PEGASYS [Suspect]
     Indication: CHRONIC HEPATITIS C
     Route: 030
     Dates: start: 20110113
  2. COPEGUS [Suspect]
     Indication: CHRONIC HEPATITIS C
     Route: 048
     Dates: start: 20110113
  3. FOLIC ACID [Concomitant]
     Route: 048
     Dates: start: 20110113, end: 20120224

REACTIONS (25)
  - Vaginal haemorrhage [Unknown]
  - Uterine leiomyoma [Unknown]
  - Rectal polyp [Unknown]
  - Haemoglobin decreased [Unknown]
  - Platelet count decreased [Unknown]
  - Leukopenia [Unknown]
  - Neutropenia [Unknown]
  - Anaemia [Unknown]
  - Pyrexia [Unknown]
  - Arthralgia [Unknown]
  - Myalgia [Unknown]
  - Asthenia [Unknown]
  - Decreased appetite [Unknown]
  - Depressed mood [Unknown]
  - Psoriasis [Unknown]
  - Splenomegaly [Unknown]
  - Fatigue [Unknown]
  - Abdominal distension [Unknown]
  - Weight decreased [Unknown]
  - Nausea [Unknown]
  - Insomnia [Unknown]
  - Urinary incontinence [Unknown]
  - Hepatic cyst [Unknown]
  - Gallbladder polyp [Unknown]
  - Flatulence [Unknown]
